FAERS Safety Report 15506022 (Version 4)
Quarter: 2018Q4

REPORT INFORMATION
  Report Type: Spontaneous
  Country: US (occurrence: US)
  Receive Date: 20181016
  Receipt Date: 20181221
  Transmission Date: 20190205
  Serious: No
  Sender: FDA-Public Use
  Company Number: US-PFIZER INC-2018410353

PATIENT
  Age: 14 Year
  Sex: Male

DRUGS (1)
  1. GENOTROPIN [Suspect]
     Active Substance: SOMATROPIN
     Indication: GROWTH HORMONE DEFICIENCY
     Dosage: 2 MG, DAILY (7 DAYS A WEEK)
     Route: 058
     Dates: start: 20180924

REACTIONS (10)
  - Product dose omission [Unknown]
  - Accidental overdose [Unknown]
  - Pain in extremity [Unknown]
  - Vomiting [Unknown]
  - Contusion [Unknown]
  - Nausea [Unknown]
  - Injection site pain [Unknown]
  - Wrong technique in device usage process [Unknown]
  - Poor quality device used [Unknown]
  - Poor quality product administered [Unknown]
